FAERS Safety Report 14841824 (Version 1)
Quarter: 2018Q2

REPORT INFORMATION
  Report Type: Spontaneous
  Country: CH (occurrence: CH)
  Receive Date: 20180503
  Receipt Date: 20180503
  Transmission Date: 20180711
  Serious: Yes (Life-Threatening)
  Sender: FDA-Public Use
  Company Number: CH-LPDUSPRD-20180697

PATIENT
  Age: 61 Year
  Sex: Male

DRUGS (5)
  1. FERINJECT [Suspect]
     Active Substance: FERRIC CARBOXYMALTOSE
     Dosage: UNKNOWN
     Route: 041
     Dates: start: 20180411, end: 20180411
  2. FRAGMIN [Concomitant]
     Active Substance: DALTEPARIN SODIUM
     Dosage: 12500 IU
     Route: 065
     Dates: start: 20180405
  3. IRINOTECAN [Suspect]
     Active Substance: IRINOTECAN
     Dosage: UNKNOWN
     Route: 041
     Dates: start: 20180328, end: 20180328
  4. OXALIPLATIN. [Concomitant]
     Active Substance: OXALIPLATIN
     Dosage: UNKNOWN
     Route: 065
     Dates: start: 20180328
  5. 5-FLUOROURACIL [Suspect]
     Active Substance: FLUOROURACIL
     Dosage: 1 DOSAGE FORMS
     Route: 041
     Dates: start: 20180328

REACTIONS (5)
  - Cardio-respiratory arrest [Unknown]
  - Ventricular fibrillation [Unknown]
  - Fall [Unknown]
  - Ill-defined disorder [Unknown]
  - Surgery [Unknown]

NARRATIVE: CASE EVENT DATE: 20180412
